FAERS Safety Report 12433668 (Version 2)
Quarter: 2016Q3

REPORT INFORMATION
  Report Type: Spontaneous
  Country: CZ (occurrence: CZ)
  Receive Date: 20160603
  Receipt Date: 20160705
  Transmission Date: 20161109
  Serious: Yes (Hospitalization, Other)
  Sender: FDA-Public Use
  Company Number: CZ-JNJFOC-20160526496

PATIENT
  Age: 44 Year
  Sex: Male

DRUGS (3)
  1. DOXORUBICIN HYDROCHLORIDE. [Suspect]
     Active Substance: DOXORUBICIN HYDROCHLORIDE
     Indication: THYROID CANCER
     Route: 065
     Dates: start: 20140131
  2. DENOSUMAB [Suspect]
     Active Substance: DENOSUMAB
     Indication: THYROID CANCER
     Route: 065
     Dates: start: 20140131
  3. CISPLATIN. [Suspect]
     Active Substance: CISPLATIN
     Indication: THYROID CANCER
     Route: 065
     Dates: start: 20140131

REACTIONS (7)
  - Thrombocytopenia [Unknown]
  - Renal function test abnormal [Recovering/Resolving]
  - Product use issue [Unknown]
  - Off label use [Unknown]
  - Anaemia [Not Recovered/Not Resolved]
  - Nausea [Unknown]
  - Hypocalcaemia [Recovered/Resolved]

NARRATIVE: CASE EVENT DATE: 2014
